FAERS Safety Report 9276409 (Version 1)
Quarter: 2013Q2

REPORT INFORMATION
  Report Type: Report from Study
  Country: DE (occurrence: DE)
  Receive Date: 20130507
  Receipt Date: 20130507
  Transmission Date: 20140414
  Serious: Yes (Hospitalization)
  Sender: FDA-Public Use
  Company Number: DE-GLAXOSMITHKLINE-B0831085A

PATIENT
  Age: 59 Year
  Sex: Female
  Weight: 90 kg

DRUGS (10)
  1. LAPATINIB [Suspect]
     Indication: BREAST CANCER
     Dosage: 750MG PER DAY
     Route: 048
     Dates: start: 20120816
  2. PACLITAXEL [Suspect]
     Indication: BREAST CANCER
     Dosage: 80MGM2 WEEKLY
     Route: 042
     Dates: start: 20120816
  3. DOXORUBICIN [Suspect]
     Indication: BREAST CANCER
     Route: 042
     Dates: start: 20120816
  4. TRASTUZUMAB [Suspect]
     Indication: BREAST CANCER
     Dosage: 8MGK EVERY 3 WEEKS
     Route: 042
     Dates: start: 20120816
  5. CARBOPLATIN [Suspect]
     Indication: BREAST CANCER
     Route: 042
     Dates: start: 20120816
  6. THYROXINE [Concomitant]
     Dosage: 100MG PER DAY
  7. METOPROLOL [Concomitant]
     Dosage: 100MG PER DAY
  8. RAMIPRIL [Concomitant]
     Dosage: 2.5MG PER DAY
  9. ASS [Concomitant]
     Dosage: 100MG PER DAY
     Dates: start: 2002
  10. PRAVASTATIN [Concomitant]
     Dosage: 20MG PER DAY
     Dates: start: 2002

REACTIONS (2)
  - Diarrhoea [Recovered/Resolved]
  - Pyrexia [Recovered/Resolved]
